FAERS Safety Report 22340955 (Version 2)
Quarter: 2023Q2

REPORT INFORMATION
  Report Type: Spontaneous
  Country: ES (occurrence: ES)
  Receive Date: 20230518
  Receipt Date: 20230529
  Transmission Date: 20230722
  Serious: Yes (Hospitalization)
  Sender: FDA-Public Use
  Company Number: ES-TEVA-2023-ES-2887928

PATIENT
  Age: 39 Year
  Sex: Female

DRUGS (1)
  1. LENALIDOMIDE [Suspect]
     Active Substance: LENALIDOMIDE
     Indication: Plasma cell myeloma
     Dosage: 25 MILLIGRAM DAILY; ON DAYS 1 TO 21 OF 28 DAY CYCLES , ONCE A DAY
     Route: 065

REACTIONS (2)
  - Type IV hypersensitivity reaction [Unknown]
  - Urticaria [Unknown]
